FAERS Safety Report 8358516 (Version 6)
Quarter: 2012Q4

REPORT INFORMATION
  Report Type: 
  Country: US (occurrence: US)
  Receive Date: 20120127
  Receipt Date: 20121221
  Transmission Date: 20130627
  Serious: Yes (Death, Hospitalization, Disabling, Other)
  Sender: FDA-Public Use
  Company Number: US-009507513-1201USA03450

PATIENT

DRUGS (12)
  1. FOSAMAX [Suspect]
     Indication: OSTEOPOROSIS
     Route: 048
     Dates: start: 1996, end: 2010
  2. FOSAMAX [Suspect]
     Indication: OSTEOPENIA
     Dosage: 10 mg, qd
     Route: 048
  3. FOSAMAX [Suspect]
     Dosage: 70 mg, qw
     Route: 048
  4. MIACALCIN [Concomitant]
     Dosage: UNK UNK, qd
     Route: 055
  5. OS-CAL PLUS [Concomitant]
     Dosage: 500 mg, qd
  6. COLACE [Concomitant]
     Dosage: 100 mg, qd
  7. SYNTHROID [Concomitant]
     Dosage: 50 ?g, qd
  8. PROTONIX [Concomitant]
     Dosage: 40 mg, qd
  9. MK-9278 [Concomitant]
  10. ASPIRIN [Concomitant]
     Dosage: 325 mg, qd
  11. ARMOUR THYROID TABLETS [Concomitant]
  12. CALCIUM (UNSPECIFIED) [Concomitant]

REACTIONS (62)
  - Femur fracture [Unknown]
  - Femur fracture [Not Recovered/Not Resolved]
  - Hip fracture [Not Recovered/Not Resolved]
  - Open reduction of fracture [Unknown]
  - Failure to thrive [Fatal]
  - Vertebroplasty [Unknown]
  - Spinal compression fracture [Unknown]
  - Osteonecrosis [Unknown]
  - Cardiac failure [Fatal]
  - Arteriosclerosis coronary artery [Fatal]
  - Non-cardiac chest pain [Recovered/Resolved]
  - Haemorrhagic anaemia [Recovering/Resolving]
  - Syncope [Unknown]
  - Convulsion [Unknown]
  - Bradycardia [Unknown]
  - Essential hypertension [Not Recovered/Not Resolved]
  - Hypothyroidism [Unknown]
  - Fall [Unknown]
  - Neuropathy peripheral [Unknown]
  - Hyperglycaemia [Unknown]
  - Tenderness [Unknown]
  - Atrioventricular block first degree [Unknown]
  - Eosinophilia [Unknown]
  - Rales [Unknown]
  - Pupillary light reflex tests abnormal [Unknown]
  - Pupils unequal [Unknown]
  - Eye disorder [Unknown]
  - Glucose tolerance impaired [Unknown]
  - Senile dementia [Unknown]
  - Carotid bruit [Unknown]
  - Cardiac murmur [Unknown]
  - Diverticulum intestinal [Unknown]
  - Urinary tract infection [Unknown]
  - Amnesia [Unknown]
  - Pulmonary oedema [Unknown]
  - Appendix disorder [Unknown]
  - Chronic obstructive pulmonary disease [Unknown]
  - Hepatic cyst [Unknown]
  - Hernia obstructive [Recovered/Resolved]
  - Pulmonary mass [Unknown]
  - Therapy regimen changed [Unknown]
  - Exostosis [Unknown]
  - Scoliosis [Unknown]
  - Spinal compression fracture [Not Recovered/Not Resolved]
  - Spinal compression fracture [Unknown]
  - Rib fracture [Unknown]
  - Peripheral artery aneurysm [Unknown]
  - Spinal osteoarthritis [Unknown]
  - Lumbar spinal stenosis [Unknown]
  - Spondylolisthesis [Unknown]
  - Osteoarthritis [Unknown]
  - Foot fracture [Recovered/Resolved]
  - Foot deformity [Unknown]
  - Hyperkeratosis [Unknown]
  - Skin lesion excision [Unknown]
  - Abdominal hernia [Unknown]
  - Splenic artery aneurysm [Unknown]
  - Hepatic cyst [Unknown]
  - Gastrooesophageal reflux disease [Unknown]
  - Arthralgia [Unknown]
  - Abdominal pain [Recovering/Resolving]
  - Constipation [Unknown]
